FAERS Safety Report 6958435-9 (Version None)
Quarter: 2010Q3

REPORT INFORMATION
  Report Type: 
  Country: None (occurrence: None)
  Receive Date: 20100831
  Receipt Date: 20100823
  Transmission Date: 20110219
  Serious: Yes (Other)
  Sender: FDA-Public Use
  Company Number: US-JNJCH-2010019343

PATIENT
  Age: 45 Year
  Sex: Female
  Weight: 68 kg

DRUGS (1)
  1. DESITIN RAPID RELIEF CREAMY [Suspect]
     Indication: VAGINAL DISORDER
     Dosage: TEXT:ONE FINGER TIPFUL ONCE
     Route: 067
     Dates: start: 20100823, end: 20100823

REACTIONS (2)
  - APPLICATION SITE BURN [None]
  - INCORRECT ROUTE OF DRUG ADMINISTRATION [None]
